FAERS Safety Report 16522341 (Version 2)
Quarter: 2019Q4

REPORT INFORMATION
  Report Type: Spontaneous
  Country: US (occurrence: US)
  Receive Date: 20190703
  Receipt Date: 20191011
  Transmission Date: 20200122
  Serious: No
  Sender: FDA-Public Use
  Company Number: US-PFIZER INC-2017096916

PATIENT
  Age: 61 Year
  Sex: Female
  Weight: 128 kg

DRUGS (4)
  1. PREDNISONE. [Concomitant]
     Active Substance: PREDNISONE
     Dosage: 2 MG, UNK
  2. LYRICA [Suspect]
     Active Substance: PREGABALIN
     Indication: POLYMYALGIA RHEUMATICA
     Dosage: 75 MG, 3X/DAY
     Dates: start: 201606
  3. LYRICA [Suspect]
     Active Substance: PREGABALIN
     Dosage: 75 MG, 3X/DAY
     Route: 048
  4. LYRICA [Suspect]
     Active Substance: PREGABALIN
     Indication: NEURALGIA
     Dosage: 75 MG, 3X/DAY
     Route: 048
     Dates: start: 20170115

REACTIONS (5)
  - Malaise [Unknown]
  - Fall [Recovering/Resolving]
  - Discomfort [Unknown]
  - Muscle injury [Unknown]
  - Accident [Unknown]

NARRATIVE: CASE EVENT DATE: 20190413
